FAERS Safety Report 7365978-5 (Version None)
Quarter: 2011Q1

REPORT INFORMATION
  Report Type: 
  Country: None (occurrence: None)
  Receive Date: 20110309
  Receipt Date: 20110224
  Transmission Date: 20110831
  Serious: Yes (Other)
  Sender: FDA-Public Use
  Company Number: JPI-P-014024

PATIENT
  Age: 58 Year
  Sex: Female

DRUGS (6)
  1. XYREM [Suspect]
     Indication: SOMNOLENCE
     Dosage: 9 GM (4.5, 2 IN 1 D), ORAL
     Route: 048
     Dates: start: 20060301
  2. XYREM [Suspect]
     Indication: NARCOLEPSY
     Dosage: 9 GM (4.5, 2 IN 1 D), ORAL
     Route: 048
     Dates: start: 20060301
  3. TRAZODONE HCL [Concomitant]
  4. MODAFINIL [Concomitant]
  5. BUPROPION HCL [Concomitant]
  6. LEVOTHYROXINE SODIUM [Concomitant]

REACTIONS (4)
  - BLOOD PRESSURE INCREASED [None]
  - OEDEMA PERIPHERAL [None]
  - FLUID RETENTION [None]
  - RETINAL DETACHMENT [None]
